FAERS Safety Report 6765605-1 (Version None)
Quarter: 2010Q2

REPORT INFORMATION
  Report Type: 
  Country: None (occurrence: None)
  Receive Date: 20100609
  Receipt Date: 20100525
  Transmission Date: 20101027
  Serious: Yes (Life-Threatening)
  Sender: FDA-Public Use
  Company Number: 2010001831

PATIENT
  Age: 73 Year
  Sex: Male

DRUGS (4)
  1. ERLOTINIB (ERLOTINIB) (TABLET) (ERLOTINIB) [Suspect]
     Indication: COLORECTAL CANCER METASTATIC
     Dosage: (300 MG),ORAL
     Route: 048
     Dates: start: 20100317, end: 20100403
  2. LEUCOVORIN CALCIUM [Concomitant]
  3. FLUOROURACIL [Concomitant]
  4. IRINOTECAN HCL [Concomitant]

REACTIONS (1)
  - INTESTINAL OBSTRUCTION [None]
